FAERS Safety Report 5068012-5 (Version None)
Quarter: 2006Q3

REPORT INFORMATION
  Report Type: 
  Country: None (occurrence: None)
  Receive Date: 20060731
  Receipt Date: 20060723
  Transmission Date: 20061208
  Serious: Yes (Other)
  Sender: FDA-Public Use
  Company Number: 2006090809

PATIENT
  Age: 33 Year
  Sex: Female
  Weight: 79.8331 kg

DRUGS (13)
  1. LYRICA [Suspect]
     Indication: HEADACHE
     Dates: start: 20060717
  2. LYRICA [Suspect]
     Indication: NEURITIS
     Dates: start: 20060717
  3. BENADRYL [Suspect]
     Indication: ANXIETY
  4. BENADRYL [Suspect]
     Indication: INSOMNIA
  5. VISTARIL [Suspect]
     Indication: ANXIETY
  6. VISTARIL [Suspect]
     Indication: INSOMNIA
  7. CLONAZEPAM [Suspect]
     Indication: ANXIETY
     Dosage: 1 MG
  8. CLONAZEPAM [Suspect]
     Indication: INSOMNIA
     Dosage: 1 MG
  9. CLONAZEPAM [Suspect]
     Indication: SLEEP TERROR
     Dosage: 1 MG
  10. NYQUIL (DEXTROMETHORPHAN HYDROBROMIDE, DOXYLAMINE SUCCINATE, EPHEDRINE [Suspect]
     Indication: ANXIETY
     Dates: start: 20060701
  11. NYQUIL (DEXTROMETHORPHAN HYDROBROMIDE, DOXYLAMINE SUCCINATE, EPHEDRINE [Suspect]
     Indication: INSOMNIA
     Dates: start: 20060701
  12. PROPRANOLOL [Concomitant]
  13. MACRODANTIN [Concomitant]

REACTIONS (8)
  - ANXIETY [None]
  - DIZZINESS [None]
  - DRUG INEFFECTIVE [None]
  - HOMICIDAL IDEATION [None]
  - INCORRECT DOSE ADMINISTERED [None]
  - NAUSEA [None]
  - SELF-INJURIOUS IDEATION [None]
  - THINKING ABNORMAL [None]
